FAERS Safety Report 9263575 (Version 4)
Quarter: 2018Q2

REPORT INFORMATION
  Report Type: Spontaneous
  Country: JP (occurrence: JP)
  Receive Date: 20130430
  Receipt Date: 20180413
  Transmission Date: 20180711
  Serious: Yes (Life-Threatening, Other)
  Sender: FDA-Public Use
  Company Number: JP-PFIZER INC-2013129115

PATIENT
  Age: 59 Year
  Sex: Male
  Weight: 66.4 kg

DRUGS (2)
  1. SUTENT [Suspect]
     Active Substance: SUNITINIB MALATE
     Indication: METASTATIC RENAL CELL CARCINOMA
     Dosage: 50 MG, 1X/DAY,4-WEEK TREATMENT AND 2-WEEK INTERRUPTION
     Route: 048
     Dates: start: 20090114
  2. SUTENT [Suspect]
     Active Substance: SUNITINIB MALATE
     Dosage: UNK (CONTINUED FOR HALF A YEAR)

REACTIONS (8)
  - Neutrophil count decreased [Unknown]
  - Palmar-plantar erythrodysaesthesia syndrome [Unknown]
  - Hypertension [Unknown]
  - Aortic dissection [Recovered/Resolved]
  - Rash [Unknown]
  - Pyrexia [Unknown]
  - Neoplasm progression [Unknown]
  - Hypothyroidism [Unknown]

NARRATIVE: CASE EVENT DATE: 20120320
